FAERS Safety Report 19837201 (Version 1)
Quarter: 2021Q3

REPORT INFORMATION
  Report Type: Spontaneous
  Country: TR (occurrence: TR)
  Receive Date: 20210915
  Receipt Date: 20210915
  Transmission Date: 20211014
  Serious: Yes (Other)
  Sender: FDA-Public Use
  Company Number: TR-UCBSA-2021043405

PATIENT
  Age: 52 Year
  Sex: Female

DRUGS (6)
  1. METHYLPREDNISOLONE. [Concomitant]
     Active Substance: METHYLPREDNISOLONE
     Indication: PYODERMA GANGRENOSUM
  2. RIFOCIN [RIFAMPICIN] [Concomitant]
     Indication: PYODERMA GANGRENOSUM
  3. MUPIROCIN. [Concomitant]
     Active Substance: MUPIROCIN
     Indication: PYODERMA GANGRENOSUM
  4. IMMUNOGLOBULIN [IMMUNOGLOBULINS NOS] [Concomitant]
     Active Substance: IMMUNE GLOBULIN NOS
     Indication: PYODERMA GANGRENOSUM
     Route: 042
  5. CERTOLIZUMAB PEGOL [Suspect]
     Active Substance: CERTOLIZUMAB PEGOL
     Indication: ANKYLOSING SPONDYLITIS
     Dosage: 200 MILLIGRAM, EV 2 WEEKS(QOW) FOR 2 YEARS
  6. MTX [METHOTREXATE] [Concomitant]
     Active Substance: METHOTREXATE SODIUM
     Indication: ANKYLOSING SPONDYLITIS
     Dosage: 15 MILLIGRAM, WEEKLY (QW)
     Route: 058

REACTIONS (3)
  - Labile hypertension [Unknown]
  - Pyoderma gangrenosum [Recovering/Resolving]
  - Psoriasis [Recovering/Resolving]
